FAERS Safety Report 15376576 (Version 3)
Quarter: 2024Q4

REPORT INFORMATION
  Report Type: Spontaneous
  Country: US (occurrence: US)
  Receive Date: 20180912
  Receipt Date: 20241114
  Transmission Date: 20250115
  Serious: No
  Sender: TAKEDA
  Company Number: US-TAKEDA-2018TUS026625

PATIENT
  Age: 38 Year
  Sex: Male
  Weight: 99.773 kg

DRUGS (3)
  1. ENTYVIO [Suspect]
     Active Substance: VEDOLIZUMAB
     Indication: Crohn^s disease
     Dosage: 300 MILLIGRAM
  2. ENTYVIO [Suspect]
     Active Substance: VEDOLIZUMAB
     Indication: Crohn^s disease
     Dosage: UNK
  3. ENTYVIO [Suspect]
     Active Substance: VEDOLIZUMAB

REACTIONS (7)
  - Urine analysis abnormal [Unknown]
  - Drug ineffective [Unknown]
  - Incorrect drug administration rate [Unknown]
  - Feeling abnormal [Unknown]
  - Incorrect drug administration rate [Unknown]
  - Body height decreased [Unknown]
  - Weight increased [Unknown]

NARRATIVE: CASE EVENT DATE: 20180304
